FAERS Safety Report 18080499 (Version 1)
Quarter: 2020Q3

REPORT INFORMATION
  Report Type: Spontaneous
  Country: US (occurrence: US)
  Receive Date: 20200728
  Receipt Date: 20200728
  Transmission Date: 20201103
  Serious: Yes (Other)
  Sender: FDA-Public Use
  Company Number: US-PURDUE-USA-2020-0159507

PATIENT
  Age: 35 Year
  Sex: Female

DRUGS (25)
  1. DURAGESIC [Suspect]
     Active Substance: FENTANYL
     Dosage: 100 MCG, Q3D
     Route: 062
     Dates: start: 20050613, end: 200509
  2. DURAGESIC [Suspect]
     Active Substance: FENTANYL
     Dosage: 25 MCG, Q3D
     Route: 062
     Dates: start: 200509, end: 200601
  3. VICODIN [Suspect]
     Active Substance: ACETAMINOPHEN\HYDROCODONE BITARTRATE
     Indication: PAIN
     Dosage: UNK
     Route: 048
     Dates: start: 20090209
  4. OXYCODONE HYDROCHLORIDE (SIMILAR TO NDA 22?272) [Suspect]
     Active Substance: OXYCODONE HYDROCHLORIDE
     Indication: KNEE OPERATION
     Dosage: UNK
     Route: 048
     Dates: start: 200703
  5. VICOPROFEN [Suspect]
     Active Substance: HYDROCODONE BITARTRATE\IBUPROFEN
     Dosage: 50 TABLET, UNK
     Route: 048
     Dates: start: 200911
  6. METHADONE [Suspect]
     Active Substance: METHADONE HYDROCHLORIDE
     Indication: PAIN
     Dosage: UNK
     Route: 048
     Dates: start: 20070917
  7. VICOPROFEN [Suspect]
     Active Substance: HYDROCODONE BITARTRATE\IBUPROFEN
     Dosage: 7.5MG/200MG, 5/DAY
     Route: 048
     Dates: start: 201112, end: 20120219
  8. DURAGESIC [Suspect]
     Active Substance: FENTANYL
     Dosage: 50 MCG, Q3D
     Route: 062
     Dates: start: 200601, end: 200602
  9. DIAZEPAM. [Suspect]
     Active Substance: DIAZEPAM
     Indication: KNEE OPERATION
     Dosage: UNK
     Route: 048
     Dates: start: 2005
  10. BACLOFEN. [Suspect]
     Active Substance: BACLOFEN
     Indication: PAIN
     Dosage: UNK
     Route: 048
     Dates: start: 2005
  11. OXYCODONE HYDROCHLORIDE (SIMILAR TO NDA 22?272) [Suspect]
     Active Substance: OXYCODONE HYDROCHLORIDE
     Dosage: 16 TABLET, DAILY
     Route: 048
     Dates: start: 200911
  12. VICOPROFEN [Suspect]
     Active Substance: HYDROCODONE BITARTRATE\IBUPROFEN
     Dosage: 7.5MG/200MG, 5/DAY
     Route: 048
     Dates: end: 201006
  13. DURAGESIC [Suspect]
     Active Substance: FENTANYL
     Indication: PAIN
     Dosage: 75 MCG, Q3D
     Route: 062
     Dates: end: 20050613
  14. OXYCONTIN [Suspect]
     Active Substance: OXYCODONE HYDROCHLORIDE
     Indication: PAIN
     Dosage: UNK
     Route: 048
     Dates: start: 200703, end: 20070919
  15. OXYCONTIN [Suspect]
     Active Substance: OXYCODONE HYDROCHLORIDE
     Dosage: UNK
     Route: 048
     Dates: start: 20080516
  16. DURAGESIC [Suspect]
     Active Substance: FENTANYL
     Dosage: 50 MCG, Q3D
     Route: 062
     Dates: start: 20071119
  17. ULTRAM [Suspect]
     Active Substance: TRAMADOL HYDROCHLORIDE
     Indication: BREAKTHROUGH PAIN
     Dosage: UNK
     Route: 048
     Dates: start: 20071018
  18. OXYCODONE HYDROCHLORIDE (SIMILAR TO NDA 22?272) [Suspect]
     Active Substance: OXYCODONE HYDROCHLORIDE
     Dosage: UNK
     Route: 048
     Dates: start: 20080516
  19. OXYCODONE HYDROCHLORIDE (SIMILAR TO NDA 22?272) [Suspect]
     Active Substance: OXYCODONE HYDROCHLORIDE
     Dosage: UNK
     Route: 048
     Dates: start: 20080703
  20. OXYCODONE HYDROCHLORIDE (SIMILAR TO NDA 22?272) [Suspect]
     Active Substance: OXYCODONE HYDROCHLORIDE
     Dosage: 15 MG, Q4H
     Route: 048
     Dates: end: 201006
  21. MORPHINE SULFATE (SIMILAR TO NDA 19?516) [Suspect]
     Active Substance: MORPHINE SULFATE
     Indication: PAIN
     Dosage: UNK
     Route: 048
     Dates: start: 200607, end: 200703
  22. DURAGESIC [Suspect]
     Active Substance: FENTANYL
     Dosage: 75 MCG, Q3D
     Route: 062
     Dates: start: 200602, end: 200607
  23. HYDROMORPHONE HCL (SIMILAR TO 19?892) [Suspect]
     Active Substance: HYDROMORPHONE HYDROCHLORIDE
     Indication: PAIN
     Dosage: UNK
     Route: 048
     Dates: start: 20071106
  24. SUBUTEX [Suspect]
     Active Substance: BUPRENORPHINE HYDROCHLORIDE
     Indication: PAIN
     Dosage: UNK
     Route: 048
  25. VICOPROFEN [Suspect]
     Active Substance: HYDROCODONE BITARTRATE\IBUPROFEN
     Indication: PAIN
     Dosage: UNK
     Route: 048
     Dates: start: 200607, end: 20080729

REACTIONS (11)
  - Drug intolerance [Unknown]
  - Drug tolerance [Unknown]
  - Rib fracture [Unknown]
  - Drug dependence [Unknown]
  - Drug ineffective [None]
  - Arthralgia [Unknown]
  - Fall [Unknown]
  - Prescribed overdose [Unknown]
  - Road traffic accident [Unknown]
  - Knee operation [Unknown]
  - Dysarthria [Unknown]

NARRATIVE: CASE EVENT DATE: 2005
